FAERS Safety Report 24144135 (Version 5)
Quarter: 2024Q4

REPORT INFORMATION
  Report Type: Report from Study
  Country: ES (occurrence: ES)
  Receive Date: 20240727
  Receipt Date: 20241003
  Transmission Date: 20250114
  Serious: Yes (Hospitalization, Other)
  Sender: ABBVIE
  Company Number: ES-ABBVIE-5854976

PATIENT
  Sex: Male

DRUGS (3)
  1. CARBIDOPA\LEVODOPA [Suspect]
     Active Substance: CARBIDOPA\LEVODOPA
     Indication: Parkinson^s disease
     Route: 050
     Dates: start: 20160317, end: 202407
  2. CARBIDOPA\LEVODOPA [Suspect]
     Active Substance: CARBIDOPA\LEVODOPA
     Dosage: LAST ADMIN DATE: 2024
     Route: 050
     Dates: start: 202408
  3. CARBIDOPA\LEVODOPA [Suspect]
     Active Substance: CARBIDOPA\LEVODOPA
     Dosage: DOSE INCREASED
     Route: 050
     Dates: start: 2024

REACTIONS (8)
  - Urinary tract infection [Recovered/Resolved]
  - Manipulation [Unknown]
  - Pyrexia [Not Recovered/Not Resolved]
  - Bacterial infection [Not Recovered/Not Resolved]
  - Sepsis [Recovered/Resolved]
  - Freezing phenomenon [Not Recovered/Not Resolved]
  - Device dislocation [Unknown]
  - Device issue [Unknown]

NARRATIVE: CASE EVENT DATE: 20240101
